FAERS Safety Report 8352718-6 (Version None)
Quarter: 2012Q2

REPORT INFORMATION
  Report Type: 
  Country: None (occurrence: None)
  Receive Date: 20120511
  Receipt Date: 20120427
  Transmission Date: 20120825
  Serious: No
  Sender: FDA-Public Use
  Company Number: US-ENDO PHARMACEUTICALS INC.-OPER20120309

PATIENT
  Sex: Female

DRUGS (5)
  1. WELLBUTRIN [Concomitant]
     Indication: DEPRESSION
     Dosage: UNK
     Route: 048
  2. CALAN [Concomitant]
     Indication: MIGRAINE
     Dosage: 180 MG
     Route: 048
  3. OPANA ER [Suspect]
     Indication: BACK PAIN
     Dosage: 10 MG
     Route: 048
     Dates: start: 20111118, end: 20111101
  4. VALIUM [Concomitant]
     Indication: ANXIETY
     Dosage: UNK
     Route: 048
  5. OPANA ER [Suspect]
     Indication: POST HERPETIC NEURALGIA
     Route: 048
     Dates: start: 20111101, end: 20120101

REACTIONS (8)
  - HYPOAESTHESIA [None]
  - CONDITION AGGRAVATED [None]
  - WITHDRAWAL SYNDROME [None]
  - INAPPROPRIATE SCHEDULE OF DRUG ADMINISTRATION [None]
  - MIGRAINE [None]
  - PAIN [None]
  - DRUG INEFFECTIVE [None]
  - INTENTIONAL DRUG MISUSE [None]
